FAERS Safety Report 19468817 (Version 1)
Quarter: 2021Q2

REPORT INFORMATION
  Report Type: Spontaneous
  Country: US (occurrence: US)
  Receive Date: 20210628
  Receipt Date: 20210628
  Transmission Date: 20210717
  Serious: No
  Sender: FDA-Public Use
  Company Number: US-TEVA-2021-US-1926530

PATIENT
  Sex: Male

DRUGS (1)
  1. AUSTEDO [Suspect]
     Active Substance: DEUTETRABENAZINE
     Indication: CHOREA
     Dosage: 24 MILLIGRAM DAILY;
     Route: 048
     Dates: start: 20210412

REACTIONS (2)
  - Gait disturbance [Recovering/Resolving]
  - Asthenia [Recovering/Resolving]
